FAERS Safety Report 14433840 (Version 3)
Quarter: 2018Q1

REPORT INFORMATION
  Report Type: Spontaneous
  Country: US (occurrence: US)
  Receive Date: 20180124
  Receipt Date: 20180202
  Transmission Date: 20180509
  Serious: Yes (Death, Hospitalization, Other)
  Sender: FDA-Public Use
  Company Number: US-ACTELION-A-US2018-166234

PATIENT
  Age: 60 Year
  Sex: Female

DRUGS (1)
  1. OPSUMIT [Suspect]
     Active Substance: MACITENTAN
     Indication: PULMONARY ARTERIAL HYPERTENSION
     Dosage: 10 MG, UNK
     Route: 048
     Dates: start: 20170706

REACTIONS (6)
  - Chest discomfort [Unknown]
  - Pleural effusion [Unknown]
  - Peripheral swelling [Unknown]
  - Dyspnoea [Unknown]
  - Death [Fatal]
  - Dizziness [Unknown]

NARRATIVE: CASE EVENT DATE: 20171221
